FAERS Safety Report 22121438 (Version 4)
Quarter: 2023Q2

REPORT INFORMATION
  Report Type: Spontaneous
  Country: US (occurrence: US)
  Receive Date: 20230321
  Receipt Date: 20230628
  Transmission Date: 20230722
  Serious: Yes (Other)
  Sender: FDA-Public Use
  Company Number: US-AMGEN-USASP2023046694

PATIENT
  Age: 69 Year
  Sex: Male

DRUGS (2)
  1. OTEZLA [Suspect]
     Active Substance: APREMILAST
     Indication: Product used for unknown indication
     Dosage: 30 MILLIGRAM
     Route: 065
  2. IMBRUVICA [Suspect]
     Active Substance: IBRUTINIB
     Indication: B-cell lymphoma
     Dosage: 420 MILLIGRAM, QD
     Route: 048
     Dates: start: 20180531

REACTIONS (9)
  - Gastrointestinal perforation [Unknown]
  - Immunodeficiency [Unknown]
  - Diarrhoea [Unknown]
  - SARS-CoV-2 test positive [Unknown]
  - White blood cell count increased [Unknown]
  - Skin disorder [Unknown]
  - Hepatic enzyme increased [Unknown]
  - Laboratory test abnormal [Unknown]
  - Product dose omission issue [Unknown]

NARRATIVE: CASE EVENT DATE: 20230101
